FAERS Safety Report 16469802 (Version 4)
Quarter: 2020Q2

REPORT INFORMATION
  Report Type: Spontaneous
  Country: US (occurrence: US)
  Receive Date: 20190624
  Receipt Date: 20200625
  Transmission Date: 20200713
  Serious: No
  Sender: FDA-Public Use
  Company Number: US-SA-2019SA169253

PATIENT

DRUGS (1)
  1. DUPIXENT [Suspect]
     Active Substance: DUPILUMAB
     Indication: ASTHMA
     Dosage: 300 MG, QOW
     Route: 058
     Dates: start: 20190404

REACTIONS (11)
  - Bone pain [Unknown]
  - Condition aggravated [Unknown]
  - Asthma [Unknown]
  - Rash [Unknown]
  - Pain in extremity [Unknown]
  - Mobility decreased [Unknown]
  - Myalgia [Unknown]
  - Lung disorder [Unknown]
  - Product use issue [Unknown]
  - Muscular weakness [Unknown]
  - Cough [Unknown]

NARRATIVE: CASE EVENT DATE: 2019
